FAERS Safety Report 13989772 (Version 1)
Quarter: 2017Q3

REPORT INFORMATION
  Report Type: Spontaneous
  Country: US (occurrence: US)
  Receive Date: 20170920
  Receipt Date: 20170920
  Transmission Date: 20171128
  Serious: Yes (Other)
  Sender: FDA-Public Use
  Company Number: None

PATIENT
  Age: 49 Year
  Sex: Male
  Weight: 90 kg

DRUGS (2)
  1. SETRALINE HYDROCHLORIDE TABS 100MG [Suspect]
     Active Substance: SERTRALINE HYDROCHLORIDE
     Indication: ANXIETY
     Dosage: ?          QUANTITY:90 TABLET(S);?
     Route: 048
  2. SETRALINE HYDROCHLORIDE TABS 100MG [Suspect]
     Active Substance: SERTRALINE HYDROCHLORIDE
     Indication: DEPRESSION
     Dosage: ?          QUANTITY:90 TABLET(S);?
     Route: 048

REACTIONS (4)
  - Obsessive-compulsive disorder [None]
  - Product quality issue [None]
  - Panic reaction [None]
  - Depression [None]

NARRATIVE: CASE EVENT DATE: 20170902
